FAERS Safety Report 7934016-5 (Version None)
Quarter: 2011Q4

REPORT INFORMATION
  Report Type: 
  Country: None (occurrence: None)
  Receive Date: 20111122
  Receipt Date: 20111110
  Transmission Date: 20120403
  Serious: Yes (Hospitalization)
  Sender: FDA-Public Use
  Company Number: US-ELI_LILLY_AND_COMPANY-US201111004627

PATIENT
  Age: 59 Year
  Sex: Male

DRUGS (5)
  1. HYDROCODONE BITARTRATE [Concomitant]
  2. IBUPROFEN [Concomitant]
  3. CYMBALTA [Suspect]
     Dosage: 30 MG, UNKNOWN
  4. GABAPENTIN [Concomitant]
  5. TIZANIDINE HCL [Concomitant]

REACTIONS (2)
  - DYSPNOEA [None]
  - DIZZINESS [None]
